FAERS Safety Report 9995767 (Version 5)
Quarter: 2014Q2

REPORT INFORMATION
  Report Type: Spontaneous
  Country: JP (occurrence: JP)
  Receive Date: 20140311
  Receipt Date: 20140620
  Transmission Date: 20141212
  Serious: Yes (Hospitalization, Other)
  Sender: FDA-Public Use
  Company Number: PHHY2014JP023708

PATIENT
  Age: 61 Year
  Sex: Female
  Weight: 52 kg

DRUGS (2)
  1. CLOZARIL [Suspect]
     Indication: SCHIZOPHRENIA
     Dosage: UNK
     Route: 048
     Dates: start: 20140123
  2. CLOZARIL [Suspect]
     Dosage: 112.5 MG, DAILY
     Route: 048
     Dates: start: 20140205, end: 20140212

REACTIONS (9)
  - Pleurisy [Recovered/Resolved]
  - Pleural effusion [Recovered/Resolved]
  - Malaise [Recovered/Resolved]
  - Pyrexia [Recovered/Resolved]
  - Inflammation [Unknown]
  - C-reactive protein increased [Recovered/Resolved]
  - Troponin T [Unknown]
  - Procalcitonin [Unknown]
  - Eosinophil count increased [Recovered/Resolved]
